FAERS Safety Report 5494558-1 (Version None)
Quarter: 2007Q4

REPORT INFORMATION
  Report Type: 
  Country: None (occurrence: None)
  Receive Date: 20071022
  Receipt Date: 20071006
  Transmission Date: 20080405
  Serious: Yes (Hospitalization)
  Sender: FDA-Public Use
  Company Number: 8027432

PATIENT
  Age: 74 Year
  Sex: Female

DRUGS (6)
  1. KEPPRA [Suspect]
     Indication: EPILEPSY
     Dosage: PO
     Route: 048
     Dates: start: 20060801, end: 20060901
  2. KEPPRA [Suspect]
     Indication: EPILEPSY
     Dosage: 500 MG 3/D PO
     Route: 048
     Dates: start: 20060901, end: 20070901
  3. VENTOLIN [Concomitant]
  4. ALEPSAL [Concomitant]
  5. TRILEPTAL [Concomitant]
  6. BECOTIDE [Concomitant]

REACTIONS (6)
  - ASTHMA [None]
  - CARDIAC FAILURE [None]
  - INFECTION [None]
  - NO THERAPEUTIC RESPONSE [None]
  - RESPIRATORY FAILURE [None]
  - TOOTH DISORDER [None]
